FAERS Safety Report 20132890 (Version 3)
Quarter: 2021Q4

REPORT INFORMATION
  Report Type: Spontaneous
  Country: JP (occurrence: JP)
  Receive Date: 20211130
  Receipt Date: 20211217
  Transmission Date: 20220303
  Serious: Yes (Death)
  Sender: FDA-Public Use
  Company Number: JP-NOVARTISPH-NVSJ2021JP019382

PATIENT
  Age: 76 Year

DRUGS (1)
  1. GLIVEC [Suspect]
     Active Substance: IMATINIB MESYLATE
     Indication: Chronic myeloid leukaemia
     Dosage: 400 MG
     Route: 048
     Dates: start: 2007, end: 201708

REACTIONS (4)
  - Obliterative bronchiolitis [Fatal]
  - Cough [Fatal]
  - Infection [Fatal]
  - Sepsis [Fatal]

NARRATIVE: CASE EVENT DATE: 20160101
